FAERS Safety Report 18191215 (Version 1)
Quarter: 2020Q3

REPORT INFORMATION
  Report Type: Spontaneous
  Country: US (occurrence: US)
  Receive Date: 20200824
  Receipt Date: 20200824
  Transmission Date: 20201103
  Serious: Yes (Other)
  Sender: FDA-Public Use
  Company Number: US-ROCHE-2554661

PATIENT
  Sex: Female
  Weight: 56 kg

DRUGS (1)
  1. ALECENSA [Suspect]
     Active Substance: ALECTINIB HYDROCHLORIDE
     Indication: LUNG NEOPLASM MALIGNANT
     Dosage: ONGOING:YES
     Route: 048
     Dates: start: 20200205

REACTIONS (2)
  - Bradycardia [Unknown]
  - Myalgia [Unknown]
